FAERS Safety Report 10504416 (Version 1)
Quarter: 2014Q4

REPORT INFORMATION
  Report Type: Spontaneous
  Country: US (occurrence: None)
  Receive Date: 20141007
  Receipt Date: 20141007
  Transmission Date: 20150528
  Serious: Yes (Life-Threatening, Hospitalization)
  Sender: FDA-Public Use
  Company Number: None

PATIENT
  Age: 19 Year
  Sex: Female
  Weight: 40.82 kg

DRUGS (1)
  1. LITHIUM CARBONATE. [Suspect]
     Active Substance: LITHIUM CARBONATE
     Indication: BIPOLAR DISORDER
     Dosage: 3PILLS
     Route: 048
     Dates: start: 20140829, end: 20141006

REACTIONS (9)
  - Dizziness [None]
  - Skin discolouration [None]
  - Suicidal ideation [None]
  - Tremor [None]
  - Vomiting [None]
  - Diarrhoea [None]
  - Memory impairment [None]
  - Toxicity to various agents [None]
  - Abdominal pain upper [None]

NARRATIVE: CASE EVENT DATE: 20141001
